FAERS Safety Report 21009130 (Version 1)
Quarter: 2022Q2

REPORT INFORMATION
  Report Type: Spontaneous
  Country: CR (occurrence: CR)
  Receive Date: 20220627
  Receipt Date: 20220627
  Transmission Date: 20220721
  Serious: Yes (Other)
  Sender: FDA-Public Use
  Company Number: CR-CELLTRION INC.-2022CR009662

PATIENT

DRUGS (1)
  1. TRUXIMA [Suspect]
     Active Substance: RITUXIMAB-ABBS
     Indication: Neuromyelitis optica spectrum disorder
     Route: 042

REACTIONS (4)
  - Neuromyelitis optica spectrum disorder [Unknown]
  - Hypersensitivity [Unknown]
  - Erythema [Unknown]
  - Off label use [Unknown]
